FAERS Safety Report 12538522 (Version 2)
Quarter: 2016Q3

REPORT INFORMATION
  Report Type: Spontaneous
  Country: US (occurrence: US)
  Receive Date: 20160708
  Receipt Date: 20160927
  Transmission Date: 20161109
  Serious: No
  Sender: FDA-Public Use
  Company Number: US-009507513-1606USA007244

PATIENT
  Sex: Female
  Weight: 97.5 kg

DRUGS (1)
  1. NEXPLANON [Suspect]
     Active Substance: ETONOGESTREL
     Indication: CONTRACEPTION
     Dosage: 1 IMPLANT FOR 3 YEARS
     Route: 059
     Dates: start: 20150819, end: 20160614

REACTIONS (2)
  - Vaginal haemorrhage [Not Recovered/Not Resolved]
  - Device breakage [Recovered/Resolved]
